FAERS Safety Report 14510104 (Version 2)
Quarter: 2018Q1

REPORT INFORMATION
  Report Type: Spontaneous
  Country: US (occurrence: US)
  Receive Date: 20180209
  Receipt Date: 20180215
  Transmission Date: 20180509
  Serious: Yes (Life-Threatening, Hospitalization)
  Sender: FDA-Public Use
  Company Number: US-ALLERGAN-1802149US

PATIENT
  Age: 34 Year
  Sex: Male
  Weight: 108.84 kg

DRUGS (3)
  1. VRAYLAR [Suspect]
     Active Substance: CARIPRAZINE
     Dosage: 1.5 MG, QD
     Route: 065
  2. VALIUM [Concomitant]
     Active Substance: DIAZEPAM
     Indication: ANXIETY
     Dosage: 10 MG, QD
     Route: 048
  3. VRAYLAR [Suspect]
     Active Substance: CARIPRAZINE
     Indication: BIPOLAR I DISORDER
     Dosage: 6 MG, QPM
     Route: 048
     Dates: start: 20171205, end: 20171223

REACTIONS (6)
  - Musculoskeletal stiffness [Unknown]
  - Seizure [Unknown]
  - Blood creatine phosphokinase increased [Unknown]
  - Somnolence [Unknown]
  - Myalgia [Unknown]
  - Neuroleptic malignant syndrome [Recovered/Resolved]

NARRATIVE: CASE EVENT DATE: 20171223
